FAERS Safety Report 7277978-4 (Version None)
Quarter: 2011Q1

REPORT INFORMATION
  Report Type: 
  Country: None (occurrence: None)
  Receive Date: 20110207
  Receipt Date: 20110202
  Transmission Date: 20110831
  Serious: Yes (Hospitalization)
  Sender: FDA-Public Use
  Company Number: FR-ROCHE-757317

PATIENT
  Sex: Female

DRUGS (2)
  1. RIVOTRIL [Suspect]
     Route: 048
  2. MORPHINE SULFATE [Suspect]
     Route: 048

REACTIONS (2)
  - MALAISE [None]
  - TOXICITY TO VARIOUS AGENTS [None]
